FAERS Safety Report 8518101-5 (Version None)
Quarter: 2012Q3

REPORT INFORMATION
  Report Type: 
  Country: None (occurrence: None)
  Receive Date: 20120718
  Receipt Date: 20111013
  Transmission Date: 20120928
  Serious: Yes (Other)
  Sender: FDA-Public Use
  Company Number: US-BRISTOL-MYERS SQUIBB COMPANY-16096828

PATIENT
  Age: 87 Year
  Sex: Male
  Weight: 79 kg

DRUGS (2)
  1. COUMADIN [Suspect]
     Indication: ATRIAL FIBRILLATION
     Dosage: COUMADIN 4 TO 5 YEARS
  2. GABAPENTIN [Concomitant]

REACTIONS (6)
  - HAEMATURIA [None]
  - CYSTITIS [None]
  - INTERNATIONAL NORMALISED RATIO FLUCTUATION [None]
  - HAEMOPTYSIS [None]
  - BLOOD ALBUMIN DECREASED [None]
  - BLADDER SPASM [None]
